FAERS Safety Report 6783505-8 (Version None)
Quarter: 2010Q2

REPORT INFORMATION
  Report Type: 
  Country: None (occurrence: None)
  Receive Date: 20100622
  Receipt Date: 20100609
  Transmission Date: 20101027
  Serious: Yes (Other)
  Sender: FDA-Public Use
  Company Number: PHHY2010AR37968

PATIENT
  Sex: Male

DRUGS (1)
  1. DIOVAN [Suspect]
     Indication: HYPERTENSION
     Dosage: 1 TABLET DAILY

REACTIONS (2)
  - ARRHYTHMIA [None]
  - BLOOD PRESSURE INCREASED [None]
